FAERS Safety Report 8789015 (Version 2)
Quarter: 2012Q4

REPORT INFORMATION
  Report Type: 
  Country: FR (occurrence: FR)
  Receive Date: 20120917
  Receipt Date: 20121017
  Transmission Date: 20130627
  Serious: Yes (Other)
  Sender: FDA-Public Use
  Company Number: FR-GE HEALTHCARE MEDICAL DIAGNOSTICS-VISP-NO-1209S-0373

PATIENT
  Age: 60 Year
  Sex: Female

DRUGS (4)
  1. VISIPAQUE [Suspect]
     Indication: SHOCK HAEMORRHAGIC
     Route: 013
     Dates: start: 20120313, end: 20120313
  2. GELOFUSINE [Suspect]
     Indication: SHOCK HAEMORRHAGIC
     Dates: start: 20120313, end: 20120313
  3. IOMERON [Suspect]
     Indication: SCAN
     Route: 042
     Dates: start: 20120313, end: 20120313
  4. LIDOCAINE HYDROCHLORIDE [Suspect]
     Indication: LOCAL ANAESTHESIA
     Dates: start: 20120313, end: 20120313

REACTIONS (7)
  - Histamine level increased [Recovered/Resolved]
  - Anaphylactoid reaction [Recovered/Resolved]
  - Erythema [Recovered/Resolved]
  - Pruritus [Recovered/Resolved]
  - Pruritus generalised [Recovered/Resolved]
  - Dyspnoea [Recovered/Resolved]
  - Hypotension [Recovered/Resolved]
